FAERS Safety Report 4342021-3 (Version None)
Quarter: 2004Q2

REPORT INFORMATION
  Report Type: 
  Country: None (occurrence: None)
  Receive Date: 20040415
  Receipt Date: 20040402
  Transmission Date: 20050107
  Serious: Yes (Hospitalization)
  Sender: FDA-Public Use
  Company Number: 2004023211

PATIENT
  Age: 52 Year
  Sex: Female

DRUGS (7)
  1. GEODON [Suspect]
     Indication: PSYCHOTIC DISORDER
     Dosage: 40 MG BID
     Dates: start: 20030101, end: 20030101
  2. SINEMET [Concomitant]
  3. PRAMIPEXOLE (PRAMIPEXOLE) [Concomitant]
  4. SIMVASTATIN [Concomitant]
  5. SALBUTAMOL (SALBUTAMOL) [Concomitant]
  6. LEVOTHYROXINE SODIUM [Concomitant]
  7. ALL OTHER THERAPEUTIC PRODUCTS [Concomitant]

REACTIONS (22)
  - ABASIA [None]
  - AGITATION [None]
  - ANXIETY [None]
  - BODY TEMPERATURE DECREASED [None]
  - BRADYKINESIA [None]
  - COGWHEEL RIGIDITY [None]
  - CORNEAL REFLEX DECREASED [None]
  - DELUSION [None]
  - DEPRESSION [None]
  - DISORIENTATION [None]
  - ELECTROCARDIOGRAM ST SEGMENT ABNORMAL [None]
  - ELECTROENCEPHALOGRAM ABNORMAL [None]
  - HALLUCINATIONS, MIXED [None]
  - HEADACHE [None]
  - HYPERHIDROSIS [None]
  - IMPAIRED SELF-CARE [None]
  - MASKED FACIES [None]
  - MUSCLE SPASMS [None]
  - NEUROLEPTIC MALIGNANT SYNDROME [None]
  - PARKINSON'S DISEASE [None]
  - RESPIRATORY RATE INCREASED [None]
  - SINUS TACHYCARDIA [None]
